FAERS Safety Report 5502346-2 (Version None)
Quarter: 2007Q4

REPORT INFORMATION
  Report Type: 
  Country: None (occurrence: None)
  Receive Date: 20071030
  Receipt Date: 20071024
  Transmission Date: 20080405
  Serious: Yes (Life-Threatening)
  Sender: FDA-Public Use
  Company Number: IT-SHR-IT-2007-027297

PATIENT
  Age: 61 Year
  Sex: Male

DRUGS (1)
  1. ULTRAVIST 370 [Suspect]
     Dosage: 200 ML, 1 DOSE
     Route: 042
     Dates: start: 20070623, end: 20070623

REACTIONS (1)
  - URTICARIA [None]
